FAERS Safety Report 9458540 (Version 3)
Quarter: 2014Q2

REPORT INFORMATION
  Report Type: Spontaneous
  Country: US (occurrence: US)
  Receive Date: 20130814
  Receipt Date: 20140416
  Transmission Date: 20141212
  Serious: No
  Sender: FDA-Public Use
  Company Number: US-009507513-1308USA003148

PATIENT
  Sex: Male
  Weight: 86.17 kg

DRUGS (2)
  1. PROPECIA [Suspect]
     Indication: ANDROGENETIC ALOPECIA
     Dosage: 1 MG, DAILY
     Route: 048
     Dates: start: 20060221, end: 20091010
  2. ZYRTEC [Suspect]
     Indication: SEASONAL ALLERGY
     Dosage: 10 MG, DAILY
     Route: 048
     Dates: start: 200602

REACTIONS (9)
  - Oesophagitis [Recovering/Resolving]
  - Gastroenteritis viral [Unknown]
  - Blood glucose increased [Unknown]
  - Metatarsalgia [Unknown]
  - Nasopharyngitis [Unknown]
  - Sinusitis [Unknown]
  - Erectile dysfunction [Not Recovered/Not Resolved]
  - Sexual dysfunction [Not Recovered/Not Resolved]
  - Acute sinusitis [Unknown]
